FAERS Safety Report 21915367 (Version 4)
Quarter: 2023Q2

REPORT INFORMATION
  Report Type: Report from Study
  Country: JP (occurrence: JP)
  Receive Date: 20230126
  Receipt Date: 20230502
  Transmission Date: 20230722
  Serious: Yes (Hospitalization, Other)
  Sender: FDA-Public Use
  Company Number: JP-ASTELLAS-2023JP000737

PATIENT
  Age: 70 Year
  Sex: Female

DRUGS (1)
  1. ENFORTUMAB VEDOTIN [Suspect]
     Active Substance: ENFORTUMAB VEDOTIN
     Indication: Transitional cell carcinoma
     Route: 065
     Dates: start: 20230106, end: 20230113

REACTIONS (1)
  - Cerebral infarction [Recovering/Resolving]

NARRATIVE: CASE EVENT DATE: 20230120
